FAERS Safety Report 12141449 (Version 2)
Quarter: 2016Q1

REPORT INFORMATION
  Report Type: Report from Study
  Country: CZ (occurrence: CZ)
  Receive Date: 20160303
  Receipt Date: 20160315
  Transmission Date: 20160526
  Serious: Yes (Life-Threatening, Hospitalization, Disabling)
  Sender: FDA-Public Use
  Company Number: CZ-BAYER-2016-033559

PATIENT
  Age: 32 Year
  Sex: Female
  Weight: 66 kg

DRUGS (5)
  1. FRAXIPARINE [Concomitant]
     Active Substance: NADROPARIN CALCIUM
     Dosage: 0.4 ML, UNK
     Route: 058
  2. DIPIDOLOR [Concomitant]
     Active Substance: PIRITRAMIDE
     Dosage: 15 MG, UNK
     Route: 030
  3. MIRENA [Suspect]
     Active Substance: LEVONORGESTREL
     Indication: CONTRACEPTION
     Dosage: 20 MCG/24HR, CONT
     Route: 015
     Dates: start: 20151014, end: 20151212
  4. PERFALGAN [Concomitant]
     Active Substance: ACETAMINOPHEN
     Dosage: 1000 ML, UNK
     Route: 042
  5. PLASMALYTE [GLUCOSE,POTASSIUM CHLORIDE] [Concomitant]
     Dosage: 1000 ML, UNK
     Route: 042

REACTIONS (8)
  - Peritoneal haemorrhage [None]
  - Abdominal tenderness [None]
  - Haemorrhagic anaemia [None]
  - Uterine inflammation [None]
  - Drug ineffective [None]
  - Ectopic pregnancy with contraceptive device [Recovered/Resolved]
  - Abdominal pain [None]
  - Amenorrhoea [None]

NARRATIVE: CASE EVENT DATE: 2015
